FAERS Safety Report 5224142-6 (Version None)
Quarter: 2007Q1

REPORT INFORMATION
  Report Type: 
  Country: None (occurrence: None)
  Receive Date: 20070130
  Receipt Date: 20070122
  Transmission Date: 20070707
  Serious: Yes (Death)
  Sender: FDA-Public Use
  Company Number: AR-JNJFOC-20070106014

PATIENT
  Age: 46 Year
  Sex: Male
  Weight: 75 kg

DRUGS (2)
  1. REMICADE [Suspect]
     Indication: POLYCHONDRITIS
     Route: 042
  2. CORTICOSTEROIDS [Concomitant]

REACTIONS (2)
  - MYELODYSPLASTIC SYNDROME [None]
  - RESPIRATORY DISTRESS [None]
